FAERS Safety Report 7004727-7 (Version None)
Quarter: 2010Q3

REPORT INFORMATION
  Report Type: 
  Country: None (occurrence: None)
  Receive Date: 20100917
  Receipt Date: 20100913
  Transmission Date: 20110219
  Serious: Yes (Hospitalization)
  Sender: FDA-Public Use
  Company Number: TUK2010A00249

PATIENT
  Sex: Female

DRUGS (1)
  1. ACTOS [Suspect]
     Indication: PRODUCT USED FOR UNKNOWN INDICATION

REACTIONS (5)
  - ABDOMINAL DISTENSION [None]
  - ABDOMINAL PAIN [None]
  - CARBOHYDRATE ANTIGEN 125 INCREASED [None]
  - CARDIAC FAILURE [None]
  - DYSPNOEA [None]
